FAERS Safety Report 16131806 (Version 1)
Quarter: 2019Q2

REPORT INFORMATION
  Report Type: Spontaneous
  Country: US (occurrence: US)
  Receive Date: 20190328
  Receipt Date: 20190328
  Transmission Date: 20190711
  Serious: Yes (Hospitalization)
  Sender: FDA-Public Use
  Company Number: None

PATIENT
  Age: 69 Year
  Sex: Male
  Weight: 90 kg

DRUGS (1)
  1. TRULICITY [Suspect]
     Active Substance: DULAGLUTIDE
     Dosage: ?          OTHER FREQUENCY:ONCE A WEEK;?

REACTIONS (3)
  - Diarrhoea [None]
  - Vomiting [None]
  - Colitis [None]

NARRATIVE: CASE EVENT DATE: 20190317
